FAERS Safety Report 5146496-1 (Version None)
Quarter: 2006Q4

REPORT INFORMATION
  Report Type: 
  Country: None (occurrence: None)
  Receive Date: 20061108
  Receipt Date: 20061030
  Transmission Date: 20070319
  Serious: Yes (Hospitalization)
  Sender: FDA-Public Use
  Company Number: US-MERCK-0611USA00617

PATIENT

DRUGS (4)
  1. CANCIDAS [Suspect]
     Indication: FUNGAL INFECTION
     Route: 042
     Dates: start: 20061001, end: 20061001
  2. TYGACIL [Concomitant]
     Route: 065
  3. VANCOMYCIN [Concomitant]
     Route: 065
  4. CEFTAZIDIME [Concomitant]
     Route: 065

REACTIONS (4)
  - BLOOD BILIRUBIN INCREASED [None]
  - HYPOTENSION [None]
  - RENAL FAILURE [None]
  - SEPSIS [None]
